FAERS Safety Report 5061759-6 (Version None)
Quarter: 2006Q3

REPORT INFORMATION
  Report Type: 
  Country: None (occurrence: None)
  Receive Date: 20060726
  Receipt Date: 20051121
  Transmission Date: 20061208
  Serious: No
  Sender: FDA-Public Use
  Company Number: US-GLAXOSMITHKLINE-A0583294A

PATIENT
  Age: 53 Year
  Sex: Female

DRUGS (8)
  1. DYAZIDE [Suspect]
     Indication: HYPERTENSION
     Dosage: 25MG PER DAY
     Route: 048
  2. LANTUS [Suspect]
     Route: 065
  3. AMARYL [Concomitant]
  4. VASOTEC [Concomitant]
  5. ZETIA [Concomitant]
  6. LOMOTIL [Concomitant]
  7. HYDROXYZINE [Concomitant]
  8. PRILOSEC [Concomitant]

REACTIONS (1)
  - BLOOD GLUCOSE INCREASED [None]
